FAERS Safety Report 21420963 (Version 1)
Quarter: 2022Q4

REPORT INFORMATION
  Report Type: Report from Study
  Country: US (occurrence: US)
  Receive Date: 20221007
  Receipt Date: 20221007
  Transmission Date: 20230113
  Serious: No
  Sender: FDA-Public Use
  Company Number: US-ABBVIE-4136960

PATIENT
  Sex: Female

DRUGS (2)
  1. RINVOQ [Suspect]
     Active Substance: UPADACITINIB
     Indication: Rheumatoid arthritis
     Route: 048
  2. Johnson + Johnson [Concomitant]
     Indication: COVID-19 immunisation
     Route: 030
     Dates: start: 202004, end: 202004

REACTIONS (2)
  - Fatigue [Not Recovered/Not Resolved]
  - Breakthrough COVID-19 [Recovered/Resolved]

NARRATIVE: CASE EVENT DATE: 20200101
